FAERS Safety Report 5082134-4 (Version None)
Quarter: 2006Q3

REPORT INFORMATION
  Report Type: 
  Country: None (occurrence: None)
  Receive Date: 20060817
  Receipt Date: 20060807
  Transmission Date: 20061208
  Serious: Yes (Hospitalization, Other)
  Sender: FDA-Public Use
  Company Number: US-JNJFOC-20060603414

PATIENT
  Sex: Female
  Weight: 55.79 kg

DRUGS (5)
  1. DOXIL [Suspect]
     Route: 042
  2. DOXIL [Suspect]
     Route: 042
  3. DOXIL [Suspect]
     Indication: OVARIAN CANCER
     Route: 042
  4. FOSAMAX [Concomitant]
     Indication: OSTEOPOROSIS
  5. VITAMINS [Concomitant]

REACTIONS (6)
  - CELLULITIS [None]
  - DERMATITIS CONTACT [None]
  - EXTRAVASATION [None]
  - INJECTION SITE EXTRAVASATION [None]
  - SKIN EXFOLIATION [None]
  - SKIN NECROSIS [None]
